FAERS Safety Report 5719633-5 (Version None)
Quarter: 2008Q2

REPORT INFORMATION
  Report Type: 
  Country: None (occurrence: None)
  Receive Date: 20080428
  Receipt Date: 20080421
  Transmission Date: 20081010
  Serious: Yes (Other)
  Sender: FDA-Public Use
  Company Number: US-AVENTIS-200812574US

PATIENT
  Sex: Female
  Weight: 67.2 kg

DRUGS (12)
  1. ARAVA [Suspect]
     Indication: RHEUMATOID ARTHRITIS
     Dosage: DOSE: UNK
  2. HUMIRA [Suspect]
     Indication: RHEUMATOID ARTHRITIS
     Dosage: DOSE: 40MG, 1 IN 2 WK
     Route: 058
     Dates: start: 20040101
  3. MESALAMINE [Concomitant]
     Indication: COLITIS
     Route: 048
     Dates: start: 20070801
  4. BISMUTH SUBSALICYLATE [Concomitant]
     Indication: COLITIS
     Dosage: DOSE: UNK
     Route: 048
  5. METHOTREXATE [Concomitant]
     Indication: RHEUMATOID ARTHRITIS
     Dosage: DOSE: UNK
  6. M.V.I. [Concomitant]
     Dosage: DOSE: 1 DOSAGE FORM
     Route: 048
  7. PANTOPRAZOLE SODIUM [Concomitant]
     Dosage: DOSE: 1 DOSAGE FORM
     Route: 048
  8. RIZATRIPTAN BENZOATE [Concomitant]
     Dosage: DOSE: UNK
  9. PARACETAMOL [Concomitant]
     Indication: PAIN
     Dosage: DOSE: UNK
     Route: 048
  10. PARACETAMOL [Concomitant]
     Indication: RHEUMATOID ARTHRITIS
     Dosage: DOSE: UNK
     Route: 048
  11. FOLIC ACID [Concomitant]
     Dosage: DOSE: UNK
     Route: 048
  12. VERAPAMIL [Concomitant]
     Indication: HYPERTENSION
     Dosage: DOSE: UNK
     Route: 048

REACTIONS (2)
  - COLITIS COLLAGENOUS [None]
  - ERYTHEMA NODOSUM [None]
